FAERS Safety Report 24097277 (Version 5)
Quarter: 2025Q1

REPORT INFORMATION
  Report Type: Spontaneous
  Country: US (occurrence: US)
  Receive Date: 20240716
  Receipt Date: 20250103
  Transmission Date: 20250408
  Serious: No
  Sender: PFIZER
  Company Number: US-PFIZER INC-PV202400092542

PATIENT
  Age: 69 Year
  Sex: Male

DRUGS (4)
  1. INLYTA [Suspect]
     Active Substance: AXITINIB
     Indication: Renal cancer
     Route: 048
  2. INLYTA [Suspect]
     Active Substance: AXITINIB
     Dosage: 3 MG, DAILY
     Route: 048
  3. INLYTA [Suspect]
     Active Substance: AXITINIB
     Dosage: 3 MG, 2X/DAY (TAKE 3 TABLETS (3 MG) TWICE DAILY WITH OR WITHOUT FOOD)
     Route: 048
  4. INLYTA [Suspect]
     Active Substance: AXITINIB
     Dosage: 3 MG, DAILY (TAKE 3 TABS DAILY WITH OR WITHOUT FOOD)
     Route: 048

REACTIONS (4)
  - Oral disorder [Unknown]
  - Dysphagia [Unknown]
  - Throat irritation [Unknown]
  - Off label use [Unknown]
